FAERS Safety Report 8834717 (Version 2)
Quarter: 2012Q4

REPORT INFORMATION
  Report Type: Report from Study
  Country: JP (occurrence: JP)
  Receive Date: 20121010
  Receipt Date: 20121120
  Transmission Date: 20130627
  Serious: Yes (Life-Threatening)
  Sender: FDA-Public Use
  Company Number: JP-NAPPMUNDI-GBR-2012-0011591

PATIENT
  Age: 57 Year
  Sex: Male
  Weight: 40 kg

DRUGS (13)
  1. OXYCODONE HCL [Suspect]
     Indication: PAIN
     Dosage: 40 mg, bid
     Route: 065
     Dates: start: 20120606
  2. CRIZOTINIB [Suspect]
     Indication: NON-SMALL CELL LUNG CANCER
     Dosage: 250 mg, bid
     Route: 048
     Dates: start: 20120524, end: 20120615
  3. DECADRON                           /00016001/ [Suspect]
     Indication: PAIN
     Dosage: 2 mg, daily
     Route: 065
     Dates: start: 20120604
  4. MAGLAX [Concomitant]
     Dosage: 660 mg, tid
     Dates: start: 20120607
  5. LENDORMIN [Concomitant]
     Dosage: 0.25 mg, PM
     Dates: start: 20120608
  6. SERENACE [Concomitant]
     Dosage: 1 mg, PM
     Dates: start: 20120612
  7. PROPETO [Concomitant]
     Dosage: UNK
     Dates: start: 20120614
  8. LOXONIN [Concomitant]
     Dosage: 60 mg, tid
     Dates: start: 20120602
  9. ALFAROL [Concomitant]
     Dosage: 0.5 mcg, daily
     Dates: start: 20120602
  10. PARIET [Concomitant]
     Dosage: 10 mg, daily
     Dates: start: 20120602
  11. NOVAMIN                            /00013301/ [Concomitant]
     Dosage: 5 mg, tid
     Dates: start: 20120602
  12. PRIMPERAN [Concomitant]
     Dosage: 5 mg, bid
     Dates: start: 20120602
  13. ASPARA-CA [Concomitant]
     Dosage: 400 mg, tid
     Dates: start: 20120607

REACTIONS (1)
  - Cholecystitis chronic [Recovered/Resolved]
